FAERS Safety Report 6882474-X (Version None)
Quarter: 2010Q3

REPORT INFORMATION
  Report Type: 
  Country: None (occurrence: None)
  Receive Date: 20100729
  Receipt Date: 20100715
  Transmission Date: 20110219
  Serious: Yes (Hospitalization)
  Sender: FDA-Public Use
  Company Number: FR-BAYER-201033194GPV

PATIENT
  Sex: Male

DRUGS (1)
  1. NEXAVAR [Suspect]
     Indication: HEPATIC NEOPLASM MALIGNANT
     Dosage: TOTAL DAILY DOSE: 600 MG  UNIT DOSE: 200 MG
     Route: 048

REACTIONS (3)
  - BLOOD GLUCOSE INCREASED [None]
  - ORCHITIS [None]
  - SKIN NECROSIS [None]
